FAERS Safety Report 18196640 (Version 1)
Quarter: 2020Q3

REPORT INFORMATION
  Report Type: Other
  Country: GB (occurrence: GB)
  Receive Date: 20200826
  Receipt Date: 20200826
  Transmission Date: 20201103
  Serious: Yes (Hospitalization)
  Sender: FDA-Public Use
  Company Number: GB-EMCURE PHARMACEUTICALS LTD-2020-EPL-001182

PATIENT
  Age: 48 Year
  Sex: Female
  Weight: 93.9 kg

DRUGS (11)
  1. PREGABALIN. [Concomitant]
     Active Substance: PREGABALIN
     Dosage: 150 MILLIGRAM, DAILY
     Route: 048
  2. AMITRIPTYLINE [Concomitant]
     Active Substance: AMITRIPTYLINE
     Dosage: UNK, 10MG?70MG ON
  3. CALCIUM AND COLECALCIFEROL [Concomitant]
     Dosage: 4 DOSAGE FORM, DAILY (COLECALCIFEROL 200UNIT / CALCIUM CARBONATE 750MG)
     Route: 048
  4. THIAMINE. [Concomitant]
     Active Substance: THIAMINE
     Dosage: 300 MILLIGRAM, DAILY
     Route: 048
  5. SALBUTAMOL [Concomitant]
     Active Substance: ALBUTEROL
     Dosage: 1 DOSAGE FORM, INHALER, PRN
     Route: 050
  6. NAPROXEN. [Concomitant]
     Active Substance: NAPROXEN
     Dosage: 1000 MILLIGRAM, DAILY
     Route: 048
  7. COCODAMOL [Concomitant]
     Active Substance: ACETAMINOPHEN\CODEINE PHOSPHATE
     Dosage: UNK UNK, PRN, UNK,30MG/500MG 1 TO 2, T?TT QDS
     Route: 048
  8. BECLOMETASONE [Concomitant]
     Active Substance: BECLOMETHASONE DIPROPIONATE
     Dosage: 2 DOSAGE FORM, DAILY
     Route: 050
  9. METFORMIN [Suspect]
     Active Substance: METFORMIN HYDROCHLORIDE
     Indication: PRODUCT USED FOR UNKNOWN INDICATION
     Dosage: 2000 MILLIGRAM, DAILY
     Route: 048
  10. FERROUS FUMARATE [Concomitant]
     Active Substance: FERROUS FUMARATE
     Dosage: 630 MILLIGRAM, FOR 3 MONTHS
     Route: 048
     Dates: start: 20190604
  11. FEXOFENADINE [Concomitant]
     Active Substance: FEXOFENADINE HYDROCHLORIDE
     Dosage: 120 MILLIGRAM, DAILY
     Route: 048

REACTIONS (3)
  - Hyponatraemia [Recovering/Resolving]
  - Metabolic acidosis [Recovering/Resolving]
  - Acute kidney injury [Recovering/Resolving]
